FAERS Safety Report 18489666 (Version 2)
Quarter: 2020Q4

REPORT INFORMATION
  Report Type: Spontaneous
  Country: US (occurrence: US)
  Receive Date: 20201111
  Receipt Date: 20201201
  Transmission Date: 20210114
  Serious: Yes (Other)
  Sender: FDA-Public Use
  Company Number: US-NOVOPROD-765034

PATIENT
  Sex: Female

DRUGS (2)
  1. NOVOLIN 70/30 [Suspect]
     Active Substance: INSULIN HUMAN
     Dosage: 90 IU, BID
     Route: 065
  2. NOVOLIN 70/30 [Suspect]
     Active Substance: INSULIN HUMAN
     Indication: PRODUCT USED FOR UNKNOWN INDICATION
     Dosage: 84 IU, BID
     Route: 065

REACTIONS (4)
  - Stress fracture [Recovered/Resolved]
  - Blood glucose increased [Not Recovered/Not Resolved]
  - Meniscus injury [Recovered/Resolved]
  - Arthritis [Recovered/Resolved]
